FAERS Safety Report 4947596-9 (Version None)
Quarter: 2006Q1

REPORT INFORMATION
  Report Type: 
  Country: None (occurrence: None)
  Receive Date: 20060320
  Receipt Date: 20060307
  Transmission Date: 20060701
  Serious: Yes (Hospitalization)
  Sender: FDA-Public Use
  Company Number: DE-ABBOTT-06P-062-0327569-00

PATIENT
  Sex: Female
  Weight: 103 kg

DRUGS (3)
  1. REDUCTIL 15MG [Suspect]
     Indication: OBESITY
     Route: 048
     Dates: start: 20051024, end: 20060201
  2. REDUCTIL 15MG [Suspect]
     Route: 048
     Dates: start: 20060201, end: 20060201
  3. FUROSEMIDE [Concomitant]
     Indication: OEDEMA PERIPHERAL
     Route: 048
     Dates: start: 20060215

REACTIONS (13)
  - AMNESIA [None]
  - BLEPHAROSPASM [None]
  - CHEST DISCOMFORT [None]
  - HYPERVENTILATION [None]
  - HYPOKINESIA [None]
  - LOSS OF CONSCIOUSNESS [None]
  - MENTAL IMPAIRMENT [None]
  - PALPITATIONS [None]
  - PARAESTHESIA [None]
  - SOMNOLENCE [None]
  - TETANY [None]
  - TINNITUS [None]
  - VOMITING [None]
